FAERS Safety Report 7338554-8 (Version None)
Quarter: 2011Q1

REPORT INFORMATION
  Report Type: 
  Country: None (occurrence: None)
  Receive Date: 20110308
  Receipt Date: 20110228
  Transmission Date: 20110831
  Serious: Yes (Hospitalization)
  Sender: FDA-Public Use
  Company Number: US-B.I. PHARMACEUTICALS,INC./RIDGEFIELD-2011-BP-05750BP

PATIENT
  Age: 71 Year
  Sex: Female
  Weight: 76.6 kg

DRUGS (8)
  1. MOBIC [Suspect]
     Indication: OSTEOARTHRITIS
     Dosage: 7.5 MG
     Route: 048
     Dates: start: 20100414
  2. OMEPRAZOLE [Concomitant]
     Indication: GASTROOESOPHAGEAL REFLUX DISEASE
     Dosage: 40 MG
     Route: 048
     Dates: start: 20090110
  3. MAGNESIUM [Concomitant]
     Indication: MUSCLE SPASMS
     Route: 048
     Dates: start: 20081220
  4. TRAMADOL HYDROCHLORIDE [Concomitant]
     Indication: PAIN
     Dosage: 50 MG
     Route: 048
     Dates: start: 20081220
  5. LISINOPRIL [Concomitant]
     Indication: HYPERTENSION
     Route: 048
     Dates: start: 19900715
  6. CITALOPRAM HYDROBROMIDE [Concomitant]
     Indication: DEPRESSION
     Dosage: 40 MG
     Route: 048
     Dates: start: 20090110
  7. ACETYLSALICYLIC ACID SRT [Suspect]
     Indication: THROMBOSIS PROPHYLAXIS
     Dosage: 81 MG
     Route: 048
     Dates: start: 20010610
  8. TANEZUMAB [Suspect]
     Indication: OSTEOARTHRITIS
     Route: 058
     Dates: start: 20091222, end: 20100608

REACTIONS (5)
  - GASTROINTESTINAL HAEMORRHAGE [None]
  - HIATUS HERNIA [None]
  - GASTRIC ULCER [None]
  - GASTRITIS [None]
  - ANAEMIA [None]
